FAERS Safety Report 6849559-5 (Version None)
Quarter: 2010Q3

REPORT INFORMATION
  Report Type: 
  Country: None (occurrence: None)
  Receive Date: 20100716
  Receipt Date: 20071128
  Transmission Date: 20110219
  Serious: No
  Sender: FDA-Public Use
  Company Number: US-PFIZER INC-2007082328

PATIENT

DRUGS (1)
  1. CHANTIX [Suspect]

REACTIONS (7)
  - ABNORMAL DREAMS [None]
  - CHAPPED LIPS [None]
  - EYE SWELLING [None]
  - FLATULENCE [None]
  - LIP SWELLING [None]
  - NAUSEA [None]
  - PRURITUS [None]
